FAERS Safety Report 8065579-X (Version None)
Quarter: 2011Q4

REPORT INFORMATION
  Report Type: 
  Country: None (occurrence: None)
  Receive Date: 20111221
  Receipt Date: 20111012
  Transmission Date: 20120403
  Serious: Yes (Other)
  Sender: FDA-Public Use
  Company Number: PHEH2011US06666

PATIENT
  Age: 7 Year
  Sex: Male
  Weight: 19.5 kg

DRUGS (1)
  1. EXJADE [Suspect]
     Indication: IRON OVERLOAD
     Dosage: 375 MG, DAILY, ORAL
     Route: 048
     Dates: start: 20110518, end: 20110613

REACTIONS (1)
  - NEUTROPENIA [None]
